FAERS Safety Report 22069416 (Version 1)
Quarter: 2023Q1

REPORT INFORMATION
  Report Type: Spontaneous
  Country: US (occurrence: US)
  Receive Date: 20230307
  Receipt Date: 20230307
  Transmission Date: 20230417
  Serious: No
  Sender: FDA-Public Use
  Company Number: US-AMNEAL PHARMACEUTICALS-2022-AMRX-04184

PATIENT
  Sex: Male

DRUGS (1)
  1. RYTARY [Suspect]
     Active Substance: CARBIDOPA\LEVODOPA
     Indication: Product used for unknown indication
     Dosage: 4 CAPSULES BY MOUTH WITH 1ST 3 DOSES (6AM, 9AM, AND NOON) AND THEN TAKE 3 CAPSULES BY MOUTH WITH LAS
     Route: 048

REACTIONS (1)
  - General physical health deterioration [Unknown]
